FAERS Safety Report 24372550 (Version 1)
Quarter: 2024Q3

REPORT INFORMATION
  Report Type: Spontaneous
  Country: US (occurrence: None)
  Receive Date: 20240927
  Receipt Date: 20240927
  Transmission Date: 20241017
  Serious: Yes (Hospitalization)
  Sender: Public
  Company Number: None

PATIENT
  Age: 67 Year
  Sex: Female

DRUGS (4)
  1. REMICADE [Suspect]
     Active Substance: INFLIXIMAB
     Indication: Crohn^s disease
     Dates: start: 20240607
  2. FAMOTIDINE [Concomitant]
  3. MIRALAX POW 3350 NF [Concomitant]
  4. PREDNISONE TAB 10MG [Concomitant]

REACTIONS (2)
  - Drug ineffective [None]
  - Abdominal pain [None]

NARRATIVE: CASE EVENT DATE: 20240723
